FAERS Safety Report 4492629-X (Version None)
Quarter: 2004Q4

REPORT INFORMATION
  Report Type: 
  Country: None (occurrence: None)
  Receive Date: 20041029
  Receipt Date: 20041018
  Transmission Date: 20050328
  Serious: Yes (Hospitalization)
  Sender: FDA-Public Use
  Company Number: 2004-BP-08872BP

PATIENT
  Age: 75 Year
  Sex: Female

DRUGS (9)
  1. COMBIVENT [Suspect]
     Indication: EMPHYSEMA
     Dosage: 8 PUF (SEE TEXT, 2 PUFFS QID),IH
     Route: 055
     Dates: start: 19940101
  2. ZOCOR [Concomitant]
  3. CARDIZEM [Concomitant]
  4. XANAX [Concomitant]
  5. PLAVIX [Concomitant]
  6. NEXIUM [Concomitant]
  7. DICYCLOMINE (DICYCLOVERINE) [Concomitant]
  8. TYLENOL [Concomitant]
  9. FOSAMAX [Concomitant]

REACTIONS (6)
  - BACK PAIN [None]
  - DEVICE FAILURE [None]
  - MYOCARDIAL INFARCTION [None]
  - NECK PAIN [None]
  - PHARMACEUTICAL PRODUCT COMPLAINT [None]
  - SPINAL OSTEOARTHRITIS [None]
